FAERS Safety Report 10447561 (Version 2)
Quarter: 2014Q3

REPORT INFORMATION
  Report Type: Spontaneous
  Country: US (occurrence: US)
  Receive Date: 20140911
  Receipt Date: 20140911
  Transmission Date: 20150326
  Serious: No
  Sender: FDA-Public Use
  Company Number: US-BEH-2014042834

PATIENT
  Sex: Female
  Weight: 90 kg

DRUGS (16)
  1. OXYGEN. [Concomitant]
     Active Substance: OXYGEN
  2. ALBUTEROL. [Concomitant]
     Active Substance: ALBUTEROL
  3. HEPARIN [Concomitant]
     Active Substance: HEPARIN SODIUM
  4. LIDOCAINE/PRILOCAINE [Concomitant]
  5. LMX [Concomitant]
     Active Substance: LIDOCAINE
  6. ZEMAIRA [Suspect]
     Active Substance: .ALPHA.1-PROTEINASE INHIBITOR HUMAN
     Route: 042
  7. DIPHENHYDRAMINE [Concomitant]
     Active Substance: DIPHENHYDRAMINE
  8. ADVAIR HFA [Concomitant]
     Active Substance: FLUTICASONE PROPIONATE\SALMETEROL XINAFOATE
  9. EPIPEN [Concomitant]
     Active Substance: EPINEPHRINE
  10. XANAX [Concomitant]
     Active Substance: ALPRAZOLAM
  11. ANTACIDS [Concomitant]
     Active Substance: UNSPECIFIED INGREDIENT
  12. ZYRTEC [Concomitant]
     Active Substance: CETIRIZINE HYDROCHLORIDE
  13. ZEMAIRA [Suspect]
     Active Substance: .ALPHA.1-PROTEINASE INHIBITOR HUMAN
     Indication: ALPHA-1 ANTI-TRYPSIN DEFICIENCY
     Route: 042
  14. SODIUM CHLORIDE. [Concomitant]
     Active Substance: SODIUM CHLORIDE
  15. HYDROCODONE ACETAMINOPHEN [Concomitant]
     Active Substance: ACETAMINOPHEN\HYDROCODONE BITARTRATE
  16. MOTRIN [Concomitant]
     Active Substance: IBUPROFEN

REACTIONS (2)
  - Fatigue [Unknown]
  - Headache [Unknown]
